FAERS Safety Report 7644807-6 (Version None)
Quarter: 2011Q3

REPORT INFORMATION
  Report Type: 
  Country: None (occurrence: None)
  Receive Date: 20110729
  Receipt Date: 20100301
  Transmission Date: 20111222
  Serious: Yes (Hospitalization, Other)
  Sender: FDA-Public Use
  Company Number: SE-JNJFOC-20110708997

PATIENT
  Age: 59 Year
  Sex: Female

DRUGS (10)
  1. CARVEDILOL [Concomitant]
     Route: 065
  2. RAMIPRIL [Concomitant]
     Route: 065
  3. TROFOSFAMIDE [Concomitant]
     Indication: PROPHYLAXIS
     Route: 048
  4. FUROSEMIDE [Concomitant]
     Route: 065
  5. DOXORUBICIN HCL [Suspect]
     Indication: LIPOSARCOMA
     Route: 042
     Dates: start: 20081001, end: 20090401
  6. ETOPOSIDE [Concomitant]
     Indication: PROPHYLAXIS
     Route: 065
  7. IFOSFAMIDE [Concomitant]
     Indication: LIPOSARCOMA
     Route: 065
     Dates: start: 20081001, end: 20090401
  8. SPIRONOLACTONE [Concomitant]
     Route: 065
  9. TRABECTEDIN [Concomitant]
     Route: 042
     Dates: start: 20091001
  10. TRABECTEDIN [Concomitant]
     Indication: LIPOSARCOMA
     Route: 042
     Dates: start: 20100201

REACTIONS (3)
  - SICK SINUS SYNDROME [None]
  - CARDIOMYOPATHY [None]
  - OFF LABEL USE [None]
